FAERS Safety Report 6780161-X (Version None)
Quarter: 2010Q2

REPORT INFORMATION
  Report Type: 
  Country: None (occurrence: None)
  Receive Date: 20100618
  Receipt Date: 20100610
  Transmission Date: 20101027
  Serious: No
  Sender: FDA-Public Use
  Company Number: US-CEPHALON-2009008717

PATIENT
  Sex: Female

DRUGS (6)
  1. FENTORA [Suspect]
     Indication: ADENOMYOSIS
     Route: 002
  2. FENTORA [Suspect]
     Route: 002
  3. ACTIQ [Suspect]
     Indication: ADENOMYOSIS
     Route: 002
  4. ACTIQ [Suspect]
     Route: 002
  5. OPANA [Concomitant]
  6. DILAUDID [Concomitant]

REACTIONS (1)
  - DRUG PRESCRIBING ERROR [None]
